FAERS Safety Report 9027894 (Version 6)
Quarter: 2013Q3

REPORT INFORMATION
  Report Type: Report from Study
  Country: DE (occurrence: DE)
  Receive Date: 20130124
  Receipt Date: 20130729
  Transmission Date: 20140515
  Serious: Yes (Hospitalization)
  Sender: FDA-Public Use
  Company Number: DE-JNJFOC-20130111067

PATIENT
  Age: 14 Year
  Sex: Female
  Weight: 37.8 kg

DRUGS (2)
  1. REMICADE [Suspect]
     Indication: CROHN^S DISEASE
     Route: 042
     Dates: start: 20090702, end: 20110902
  2. 5-ASA [Concomitant]
     Route: 054

REACTIONS (1)
  - Influenza [Recovered/Resolved]
